FAERS Safety Report 5267582-1 (Version None)
Quarter: 2007Q1

REPORT INFORMATION
  Report Type: 
  Country: None (occurrence: None)
  Receive Date: 20070316
  Receipt Date: 20070314
  Transmission Date: 20070707
  Serious: Yes (Death, Congenital Anomaly)
  Sender: FDA-Public Use
  Company Number: US-BOEHRINGER INGELHEIM PHARMACEUTICALS, INC.-2007-BP-01207BP

PATIENT

DRUGS (2)
  1. FLOMAX [Suspect]
  2. EFFEXOR XR [Suspect]

REACTIONS (6)
  - CLUBBING [None]
  - EAR MALFORMATION [None]
  - LIMB DEFORMITY [None]
  - LOWER LIMB DEFORMITY [None]
  - SKULL MALFORMATION [None]
  - UMBILICAL CORD ABNORMALITY [None]
